FAERS Safety Report 5507064-2 (Version None)
Quarter: 2007Q4

REPORT INFORMATION
  Report Type: 
  Country: None (occurrence: None)
  Receive Date: 20071102
  Receipt Date: 20071022
  Transmission Date: 20080405
  Serious: Yes (Death)
  Sender: FDA-Public Use
  Company Number: 2007333640

PATIENT
  Age: 20 Month
  Sex: Male

DRUGS (2)
  1. DOXYLAMINE SUCCINATE [Suspect]
  2. PHENERGAN W/DEXTROMETHORPHAN (DEXTROMETHORPHAN HYDROBROMIDE, PROMETHAZ [Suspect]
     Dosage: LESS THAN ONE TEASPOON, ORAL
     Route: 048

REACTIONS (1)
  - DRUG TOXICITY [None]
